FAERS Safety Report 22185943 (Version 1)
Quarter: 2023Q2

REPORT INFORMATION
  Report Type: Other
  Country: CN (occurrence: None)
  Receive Date: 20230407
  Receipt Date: 20230407
  Transmission Date: 20230721
  Serious: Yes (Hospitalization)
  Sender: FDA-Public Use
  Company Number: CN-ROCHE-3325145

PATIENT
  Age: 65 Year
  Sex: Male

DRUGS (4)
  1. BEVACIZUMAB [Suspect]
     Active Substance: BEVACIZUMAB
     Indication: Lung adenocarcinoma
     Route: 038
  2. GEFITINIB [Suspect]
     Active Substance: GEFITINIB
     Indication: Lung adenocarcinoma
     Route: 065
  3. CISPLATIN [Concomitant]
     Active Substance: CISPLATIN
     Indication: Lung adenocarcinoma
  4. OSIMERTINIB [Concomitant]
     Active Substance: OSIMERTINIB

REACTIONS (3)
  - Nephrotic syndrome [Recovering/Resolving]
  - IgA nephropathy [Recovering/Resolving]
  - Condition aggravated [Unknown]
